FAERS Safety Report 12812510 (Version 1)
Quarter: 2016Q4

REPORT INFORMATION
  Report Type: Spontaneous
  Country: GB (occurrence: GB)
  Receive Date: 20161005
  Receipt Date: 20161005
  Transmission Date: 20170207
  Serious: Yes (Hospitalization, Other)
  Sender: FDA-Public Use
  Company Number: GB-TEVA-697642ACC

PATIENT
  Age: 71 Year
  Sex: Female

DRUGS (5)
  1. MEBEVERINE [Concomitant]
     Active Substance: MEBEVERINE
  2. DABIGATRAN [Suspect]
     Active Substance: DABIGATRAN
     Dosage: 220 MILLIGRAM DAILY;
     Route: 048
     Dates: end: 20160828
  3. VENLAFAXINE [Suspect]
     Active Substance: VENLAFAXINE HYDROCHLORIDE
     Dosage: 75 MILLIGRAM DAILY; EVERY MORNING
     Route: 048
     Dates: end: 20160814
  4. BISOPROLOL [Concomitant]
     Active Substance: BISOPROLOL
  5. BUMETANIDE. [Concomitant]
     Active Substance: BUMETANIDE

REACTIONS (1)
  - Anaemia [Recovering/Resolving]

NARRATIVE: CASE EVENT DATE: 20160828
